FAERS Safety Report 23291552 (Version 1)
Quarter: 2023Q4

REPORT INFORMATION
  Report Type: Spontaneous
  Country: DE (occurrence: DE)
  Receive Date: 20231213
  Receipt Date: 20231213
  Transmission Date: 20240110
  Serious: Yes (Other)
  Sender: FDA-Public Use
  Company Number: None

PATIENT
  Sex: Male

DRUGS (6)
  1. LEVETIRACETAM [Suspect]
     Active Substance: LEVETIRACETAM
     Indication: Partial seizures
     Dosage: UNK
     Dates: start: 2022
  2. LACOSAMIDE [Suspect]
     Active Substance: LACOSAMIDE
     Indication: Partial seizures
     Dosage: MONOTHERAPY
     Dates: start: 2021
  3. OXCARBAZEPINE [Suspect]
     Active Substance: OXCARBAZEPINE
     Indication: Partial seizures
     Dosage: LOW DOSE, MONOTHERAPY
     Dates: start: 201706, end: 2021
  4. VALPROATE [Suspect]
     Active Substance: VALPROIC ACID
     Indication: Partial seizures
     Dosage: 300 MILLIGRAM, 12 DAYS
     Dates: start: 20230605
  5. SULTHIAME [Suspect]
     Active Substance: SULTHIAME
     Indication: Partial seizures
     Dosage: UNK
     Dates: start: 20230526
  6. PERAMPANEL [Suspect]
     Active Substance: PERAMPANEL
     Indication: Partial seizures
     Dosage: 8 MILLIGRAM, 8 HOURS
     Dates: start: 20230526

REACTIONS (9)
  - Epilepsy [Unknown]
  - Psychotic disorder [Unknown]
  - Gait disturbance [Unknown]
  - General physical health deterioration [Unknown]
  - Hallucination [Unknown]
  - Dysarthria [Unknown]
  - Eczema [Unknown]
  - Fatigue [Unknown]
  - Laziness [Unknown]
